FAERS Safety Report 5353227-9 (Version None)
Quarter: 2007Q2

REPORT INFORMATION
  Report Type: 
  Country: None (occurrence: None)
  Receive Date: 20070608
  Receipt Date: 20070531
  Transmission Date: 20071010
  Serious: Yes (Hospitalization)
  Sender: FDA-Public Use
  Company Number: 2007BI011703

PATIENT
  Age: 49 Year
  Sex: Male
  Weight: 77.1115 kg

DRUGS (1)
  1. AVONEX [Suspect]
     Indication: MULTIPLE SCLEROSIS
     Dosage: 30 UG; QW; IM
     Route: 030

REACTIONS (9)
  - DEHYDRATION [None]
  - DYSARTHRIA [None]
  - FAECAL INCONTINENCE [None]
  - FALL [None]
  - FLUID INTAKE REDUCED [None]
  - MOVEMENT DISORDER [None]
  - MUSCULAR WEAKNESS [None]
  - URINARY INCONTINENCE [None]
  - VOMITING [None]
